FAERS Safety Report 18888040 (Version 1)
Quarter: 2021Q1

REPORT INFORMATION
  Report Type: Spontaneous
  Country: US (occurrence: US)
  Receive Date: 20210212
  Receipt Date: 20210212
  Transmission Date: 20210420
  Serious: No
  Sender: FDA-Public Use
  Company Number: US-SA-2021SA043960

PATIENT

DRUGS (2)
  1. DUPIXENT [Concomitant]
     Active Substance: DUPILUMAB
  2. DUPILUMAB [Suspect]
     Active Substance: DUPILUMAB
     Dosage: 300 MG, QOW
     Route: 058

REACTIONS (2)
  - Thrombocytosis [Not Recovered/Not Resolved]
  - Platelet count increased [Not Recovered/Not Resolved]
